FAERS Safety Report 12964753 (Version 6)
Quarter: 2018Q3

REPORT INFORMATION
  Report Type: Report from Study
  Country: IL (occurrence: IL)
  Receive Date: 20161122
  Receipt Date: 20180705
  Transmission Date: 20181010
  Serious: Yes (Other)
  Sender: FDA-Public Use
  Company Number: IL-JNJFOC-20161117824

PATIENT
  Age: 32 Year
  Sex: Male
  Weight: 120 kg

DRUGS (2)
  1. STELARA [Suspect]
     Active Substance: USTEKINUMAB
     Indication: PSORIASIS
     Route: 058
     Dates: start: 20150616
  2. STELARA [Suspect]
     Active Substance: USTEKINUMAB
     Indication: PSORIASIS
     Route: 058

REACTIONS (7)
  - Surgery [Unknown]
  - Fungal skin infection [Recovered/Resolved]
  - Liver function test increased [Recovering/Resolving]
  - Inappropriate schedule of drug administration [Unknown]
  - Angina pectoris [Not Recovered/Not Resolved]
  - Influenza [Recovering/Resolving]
  - Helicobacter infection [Recovered/Resolved]

NARRATIVE: CASE EVENT DATE: 201605
